FAERS Safety Report 4366105-9 (Version None)
Quarter: 2004Q2

REPORT INFORMATION
  Report Type: 
  Country: None (occurrence: None)
  Receive Date: 20040527
  Receipt Date: 20040518
  Transmission Date: 20050107
  Serious: Yes (Hospitalization)
  Sender: FDA-Public Use
  Company Number: PHBS2004CO06648

PATIENT
  Age: 65 Year
  Sex: Female

DRUGS (3)
  1. FORADIL [Suspect]
     Indication: CHRONIC OBSTRUCTIVE AIRWAYS DISEASE
     Dosage: 1 DF/DAY
     Dates: start: 20040101
  2. FLANTADIN [Concomitant]
  3. MIFLONIDE [Concomitant]

REACTIONS (2)
  - BRONCHIAL HYPERACTIVITY [None]
  - BRONCHITIS ACUTE [None]
